FAERS Safety Report 5740788-0 (Version None)
Quarter: 2008Q2

REPORT INFORMATION
  Report Type: 
  Country: None (occurrence: None)
  Receive Date: 20080516
  Receipt Date: 20080506
  Transmission Date: 20081010
  Serious: Yes (Other)
  Sender: FDA-Public Use
  Company Number: US-PFIZER INC-2007013479

PATIENT
  Sex: Female
  Weight: 68 kg

DRUGS (10)
  1. NEURONTIN [Suspect]
     Indication: FIBROMYALGIA
     Dates: start: 20061201, end: 20070201
  2. LYRICA [Suspect]
     Indication: FIBROMYALGIA
  3. GABAPENTIN [Suspect]
  4. MORPHINE [Concomitant]
  5. QUETIAPINE FUMARATE [Concomitant]
  6. AMITRIPTYLINE HCL [Concomitant]
  7. CLONAZEPAM [Concomitant]
  8. HYDROCODONE BITARTRATE [Concomitant]
  9. PREVACID [Concomitant]
  10. LISINOPRIL [Concomitant]

REACTIONS (15)
  - BLOOD PRESSURE DECREASED [None]
  - BLOOD PRESSURE INCREASED [None]
  - DISTURBANCE IN ATTENTION [None]
  - DRY MOUTH [None]
  - FATIGUE [None]
  - HEADACHE [None]
  - LETHARGY [None]
  - MYALGIA [None]
  - NAUSEA [None]
  - PAIN [None]
  - PAIN IN EXTREMITY [None]
  - PAIN IN JAW [None]
  - SOMNOLENCE [None]
  - VISION BLURRED [None]
  - WEIGHT INCREASED [None]
